FAERS Safety Report 8174170-6 (Version None)
Quarter: 2012Q1

REPORT INFORMATION
  Report Type: 
  Country: None (occurrence: None)
  Receive Date: 20120229
  Receipt Date: 20120227
  Transmission Date: 20120608
  Serious: No
  Sender: FDA-Public Use
  Company Number: US-TEVA-323833USA

PATIENT
  Sex: Female
  Weight: 45.4 kg

DRUGS (3)
  1. LEVOXYL [Concomitant]
     Indication: HYPOTHYROIDISM
     Dosage: .175 MILLIGRAM;
     Route: 048
  2. PLAN B ONE-STEP [Suspect]
     Indication: POST COITAL CONTRACEPTION
     Dosage: 1.5 MILLIGRAM;
     Route: 048
     Dates: start: 20120115, end: 20120115
  3. ZOLOFT [Concomitant]
     Indication: ANXIETY
     Dosage: 100 MILLIGRAM;
     Route: 048

REACTIONS (1)
  - MENSTRUATION IRREGULAR [None]
